FAERS Safety Report 11062825 (Version 1)
Quarter: 2015Q2

REPORT INFORMATION
  Report Type: Spontaneous
  Country: PT (occurrence: None)
  Receive Date: 20150422
  Receipt Date: 20150422
  Transmission Date: 20150821
  Serious: Yes (Other)
  Sender: FDA-Public Use
  Company Number: FK201501750

PATIENT
  Age: 39 Year
  Sex: Female
  Weight: 49 kg

DRUGS (5)
  1. DEXAMETHASONE. [Concomitant]
     Active Substance: DEXAMETHASONE
  2. RANITIDINE [Concomitant]
     Active Substance: RANITIDINE\RANITIDINE HYDROCHLORIDE
  3. ONDANSETRON [Concomitant]
     Active Substance: ONDANSETRON
  4. PACLITAXEL 6 MG/ML CONCENTRATE FOR SOLUTION FOR INFUSION (PACLITAXEL) (PACLITAXEL) [Suspect]
     Active Substance: PACLITAXEL
     Indication: BREAST CANCER
     Dosage: 97 MG, 1 IN 7 D
     Route: 042
     Dates: start: 20150325, end: 20150325
  5. TAVIST (CLEMASTINE FUMARATE) [Concomitant]

REACTIONS (5)
  - Dyspnoea [None]
  - Flushing [None]
  - Bronchospasm [None]
  - Cough [None]
  - Anaphylactic reaction [None]

NARRATIVE: CASE EVENT DATE: 20150325
